FAERS Safety Report 25482758 (Version 1)
Quarter: 2025Q2

REPORT INFORMATION
  Report Type: Spontaneous
  Country: CN (occurrence: CN)
  Receive Date: 20250626
  Receipt Date: 20250626
  Transmission Date: 20250717
  Serious: Yes (Other)
  Sender: BAXTER
  Company Number: CN-MLMSERVICE-20250612-PI541747-00101-1

PATIENT
  Age: 61 Year
  Sex: Female

DRUGS (10)
  1. CYCLOPHOSPHAMIDE [Suspect]
     Active Substance: CYCLOPHOSPHAMIDE
     Indication: Plasma cell myeloma
     Dosage: KD-DECP, HALVED DOSAGE DUE TO POOR TOLERANCE, ON DAYS 1-4 TWO CYCLES
     Route: 065
     Dates: start: 2023, end: 2023
  2. CYCLOPHOSPHAMIDE [Suspect]
     Active Substance: CYCLOPHOSPHAMIDE
     Indication: Lymphodepletion
     Route: 065
  3. CISPLATIN [Suspect]
     Active Substance: CISPLATIN
     Indication: Plasma cell myeloma
     Dosage: KD-DECP, HALVED DOSAGE DUE TO POOR TOLERANCE,  ON DAYS 1-4 TWO CYCLES
     Route: 065
     Dates: start: 2023, end: 2023
  4. DEXAMETHASONE [Suspect]
     Active Substance: DEXAMETHASONE
     Indication: Plasma cell myeloma
     Dosage: KD-DECP, HALVED DOSAGE DUE TO POOR TOLERANCE, 20 MG ON DAYS 1-4, 8-9, AND 15-16 TWO CYCLES
     Route: 065
     Dates: start: 2023, end: 2023
  5. ETOPOSIDE [Suspect]
     Active Substance: ETOPOSIDE
     Indication: Plasma cell myeloma
     Dosage: KD-DECP, HALVED DOSAGE DUE TO POOR TOLERANCE, 40 MG ON DAYS 1-4 TWO CYCLES
     Route: 065
     Dates: start: 2023, end: 2023
  6. CARFILZOMIB [Suspect]
     Active Substance: CARFILZOMIB
     Indication: Plasma cell myeloma refractory
     Dosage: KD-DECP, HALVED DOSAGE DUE TO POOR TOLERANCE, 20MG/M2 ON DAYS 1-2, 27MG/M2 ON DAYS 8-9, 15-16 TWO CY
     Route: 065
     Dates: start: 2023, end: 2023
  7. CARFILZOMIB [Suspect]
     Active Substance: CARFILZOMIB
     Dosage: KD-DECP, HALVED DOSAGE DUE TO POOR TOLERANCE, 27MG/M2 ON DAYS 8-9, 15-16 TWO CYCLES
     Route: 065
     Dates: start: 2023, end: 2023
  8. DARATUMUMAB [Suspect]
     Active Substance: DARATUMUMAB
     Indication: Plasma cell myeloma
     Dosage: KD-DECP, HALVED DOSAGE, 700MG ON DAYS 1, 8,15, AND 22 TWO CYCLES
     Route: 065
     Dates: start: 2023
  9. DARATUMUMAB [Suspect]
     Active Substance: DARATUMUMAB
     Dosage: KD-DECP WITH HALVED DOSAGE DUE TO POOR TOLERANCE:16 MG/KG, 1X A WEEK ON DAYS 1, 8, 15, AND 22
     Route: 065
  10. FLUDARABINE [Suspect]
     Active Substance: FLUDARABINE PHOSPHATE
     Indication: Lymphodepletion
     Route: 065

REACTIONS (6)
  - Cytokine release syndrome [Recovered/Resolved]
  - Disease progression [Unknown]
  - Therapy partial responder [Unknown]
  - Neutropenia [Recovered/Resolved]
  - Febrile neutropenia [Unknown]
  - Thrombocytopenia [Recovered/Resolved]

NARRATIVE: CASE EVENT DATE: 20230101
